FAERS Safety Report 25623371 (Version 1)
Quarter: 2025Q3

REPORT INFORMATION
  Report Type: Report from Study
  Country: CA (occurrence: CA)
  Receive Date: 20250730
  Receipt Date: 20250730
  Transmission Date: 20251020
  Serious: Yes (Other)
  Sender: ABBVIE
  Company Number: CA-ABBVIE-6392003

PATIENT
  Age: 72 Year
  Sex: Female

DRUGS (1)
  1. RINVOQ [Suspect]
     Active Substance: UPADACITINIB
     Indication: Psoriatic arthropathy
     Route: 048

REACTIONS (4)
  - Suicidal ideation [Unknown]
  - Pain [Unknown]
  - Upper limb fracture [Unknown]
  - Ligament sprain [Unknown]

NARRATIVE: CASE EVENT DATE: 20241101
